FAERS Safety Report 7562453-X (Version None)
Quarter: 2011Q2

REPORT INFORMATION
  Report Type: 
  Country: None (occurrence: None)
  Receive Date: 20110614
  Receipt Date: 20110531
  Transmission Date: 20111010
  Serious: Yes (Hospitalization, Other)
  Sender: FDA-Public Use
  Company Number: 2011-156

PATIENT
  Age: 54 Year
  Sex: Female

DRUGS (8)
  1. OXYCODONE HCL [Concomitant]
  2. METHADONE HCL [Concomitant]
  3. PRIALT [Suspect]
     Indication: PAIN
     Dosage: 0.05 UG, ONCE/HOUR, INTRATHECAL; 0.09 UG, ONCE/HOUR, INTRATHECAL; 0.1 UG, ONCE/HOUR, INTRATHECAL
     Route: 037
     Dates: start: 20110301, end: 20110421
  4. PRIALT [Suspect]
     Indication: NEUROPATHY PERIPHERAL
     Dosage: 0.05 UG, ONCE/HOUR, INTRATHECAL; 0.09 UG, ONCE/HOUR, INTRATHECAL; 0.1 UG, ONCE/HOUR, INTRATHECAL
     Route: 037
     Dates: start: 20110301, end: 20110421
  5. PRIALT [Suspect]
     Indication: PAIN
     Dosage: 0.05 UG, ONCE/HOUR, INTRATHECAL; 0.09 UG, ONCE/HOUR, INTRATHECAL; 0.1 UG, ONCE/HOUR, INTRATHECAL
     Route: 037
     Dates: start: 20110303, end: 20110301
  6. PRIALT [Suspect]
     Indication: NEUROPATHY PERIPHERAL
     Dosage: 0.05 UG, ONCE/HOUR, INTRATHECAL; 0.09 UG, ONCE/HOUR, INTRATHECAL; 0.1 UG, ONCE/HOUR, INTRATHECAL
     Route: 037
     Dates: start: 20110303, end: 20110301
  7. PRIALT [Suspect]
     Indication: PAIN
     Dosage: 0.05 UG, ONCE/HOUR, INTRATHECAL; 0.09 UG, ONCE/HOUR, INTRATHECAL; 0.1 UG, ONCE/HOUR, INTRATHECAL
     Route: 037
     Dates: start: 20110301, end: 20110301
  8. PRIALT [Suspect]
     Indication: NEUROPATHY PERIPHERAL
     Dosage: 0.05 UG, ONCE/HOUR, INTRATHECAL; 0.09 UG, ONCE/HOUR, INTRATHECAL; 0.1 UG, ONCE/HOUR, INTRATHECAL
     Route: 037
     Dates: start: 20110301, end: 20110301

REACTIONS (4)
  - ASTHENIA [None]
  - DYSPNOEA [None]
  - PULMONARY OEDEMA [None]
  - TREMOR [None]
